FAERS Safety Report 4370970-9 (Version None)
Quarter: 2004Q2

REPORT INFORMATION
  Report Type: 
  Country: None (occurrence: None)
  Receive Date: 20040601
  Receipt Date: 20040525
  Transmission Date: 20050107
  Serious: Yes (Hospitalization)
  Sender: FDA-Public Use
  Company Number: JP-JNJFOC-20040506140

PATIENT
  Age: 26 Year
  Sex: Female

DRUGS (6)
  1. RISPERDAL [Suspect]
     Indication: SCHIZOPHRENIA
     Dosage: 6 MG,  IN 1 DAY, ORAL
     Route: 048
     Dates: start: 20040322, end: 20040416
  2. BIPERIDEN HYDROCHLORIDE (BIPERIDEN HYDRCHOLORIDE) [Concomitant]
  3. BROMOCRIOPTINE MESYLATE (BROMOCRIPTINE) [Concomitant]
  4. BROTIZOLAM (BROTIZOLAM) [Concomitant]
  5. ETHYL LOFLAZEPATE (ETHYL LOFLAZEPATE) [Concomitant]
  6. DIZEPAM (DIAZEPAM) [Concomitant]

REACTIONS (2)
  - HYPERPROLACTINAEMIA [None]
  - OVARIAN NEOPLASM [None]
